FAERS Safety Report 20193893 (Version 1)
Quarter: 2021Q4

REPORT INFORMATION
  Report Type: Other
  Country: DE (occurrence: DE)
  Receive Date: 20211216
  Receipt Date: 20211216
  Transmission Date: 20220303
  Serious: Yes (Death, Life-Threatening, Hospitalization)
  Sender: FDA-Public Use
  Company Number: DE-MACLEODS PHARMACEUTICALS US LTD-MAC2021033702

PATIENT

DRUGS (29)
  1. AMLODIPINE [Suspect]
     Active Substance: AMLODIPINE BESYLATE
     Indication: Product used for unknown indication
     Dosage: 5 DOSAGE FORM, BID, (ONCE IN MORNING, ONCE IN EVENING)
     Route: 065
     Dates: start: 200803
  2. PREDNISOLONE [Suspect]
     Active Substance: PREDNISOLONE
     Indication: Product used for unknown indication
     Dosage: UNK
     Route: 065
  3. LEVOTHYROXINE SODIUM [Suspect]
     Active Substance: LEVOTHYROXINE SODIUM
     Indication: Product used for unknown indication
     Dosage: UNK
     Route: 065
     Dates: start: 2014, end: 2016
  4. LEVOTHYROXINE SODIUM [Suspect]
     Active Substance: LEVOTHYROXINE SODIUM
     Dosage: UNK, QD (STOPPED ON 12 JUN 2018 BUT ONGOING AT DISCHARGE FROM REHABILITATION, 1.25 TABLETS)
     Route: 048
     Dates: start: 20180524
  5. AMLODIPINE [Suspect]
     Active Substance: AMLODIPINE BESYLATE
     Indication: Product used for unknown indication
     Dosage: 5 MILLIGRAM, BID, (STOPPED ON 12 JUN 2018, ONGOING AT DISCHARGE FROM REHABILITATION, (8 A.M AND 6 P.
     Route: 048
     Dates: start: 20180523
  6. AMLODIPINE [Suspect]
     Active Substance: AMLODIPINE BESYLATE
     Dosage: 5 MILLIGRAM
     Route: 065
     Dates: start: 2016, end: 2017
  7. BISOPROLOL FUMARATE\HYDROCHLOROTHIAZIDE [Suspect]
     Active Substance: BISOPROLOL FUMARATE\HYDROCHLOROTHIAZIDE
     Indication: Product used for unknown indication
     Dosage: UNK
     Route: 065
     Dates: start: 2014, end: 2018
  8. VALSARTAN [Suspect]
     Active Substance: VALSARTAN
     Indication: Product used for unknown indication
     Dosage: UNK [MAH: MYLAN DURA]
     Route: 065
     Dates: start: 201702, end: 2018
  9. IBUPROFEN [Concomitant]
     Active Substance: IBUPROFEN
     Indication: Product used for unknown indication
     Dosage: UNK, QD (UNK, BID (1X 400 , 2X DAILY (MORNING AND EVENING))
     Route: 065
  10. HYDROCHLOROTHIAZIDE [Concomitant]
     Active Substance: HYDROCHLOROTHIAZIDE
     Indication: Product used for unknown indication
     Dosage: 25 MILLIGRAM, QD (? TABLET OF 25 MG)
     Route: 048
     Dates: start: 20180504, end: 20180524
  11. Tavor [Concomitant]
     Indication: Product used for unknown indication
     Dosage: UNK (1.0)
     Route: 065
     Dates: start: 201902
  12. LEVOTHYROXINE SODIUM [Concomitant]
     Active Substance: LEVOTHYROXINE SODIUM
     Indication: Product used for unknown indication
     Dosage: UNK (125)
     Route: 065
     Dates: start: 2016
  13. LEVOTHYROXINE SODIUM [Concomitant]
     Active Substance: LEVOTHYROXINE SODIUM
     Dosage: UNK, QD (1 X 125)
     Route: 065
     Dates: start: 199003, end: 2018
  14. EUTHYROX [Concomitant]
     Active Substance: LEVOTHYROXINE SODIUM
     Indication: Product used for unknown indication
     Dosage: UNK, QD (1X 125, 1X DAILY (MORNING))
     Route: 065
  15. FENTANYL CT [Concomitant]
     Indication: Product used for unknown indication
     Dosage: UNK (12 UG/H)
     Route: 065
     Dates: start: 201903
  16. HALOPERIDOL [Concomitant]
     Active Substance: HALOPERIDOL
     Indication: Product used for unknown indication
     Dosage: 30 MILLILITER
     Route: 065
     Dates: start: 201902
  17. PANTOPRAZOLE [Concomitant]
     Active Substance: PANTOPRAZOLE
     Indication: Product used for unknown indication
     Dosage: UNK, QD (1X 40)
     Route: 065
  18. PANTOPRAZOLE [Concomitant]
     Active Substance: PANTOPRAZOLE
     Dosage: 40 MILLIGRAM
     Route: 065
     Dates: start: 201901
  19. FUROSEMIDE [Concomitant]
     Active Substance: FUROSEMIDE
     Indication: Product used for unknown indication
     Dosage: 80 MILLIGRAM, QD (40 MG, BID)
     Route: 065
     Dates: start: 201903
  20. HYDROMORPHONE [Concomitant]
     Active Substance: HYDROMORPHONE
     Indication: Product used for unknown indication
     Dosage: 2 MILLIGRAM
     Route: 065
     Dates: start: 201902
  21. BISOPROLOL FUMARATE\HYDROCHLOROTHIAZIDE [Concomitant]
     Active Substance: BISOPROLOL FUMARATE\HYDROCHLOROTHIAZIDE
     Indication: Product used for unknown indication
     Dosage: UNK, QD (?X 10/25, 1X DAILY (MORNING))
     Route: 065
     Dates: start: 201302
  22. Colecalciferol/Retinol [Concomitant]
     Indication: Product used for unknown indication
     Dosage: UNK
     Route: 065
     Dates: start: 2018
  23. ACETAMINOPHEN [Concomitant]
     Active Substance: ACETAMINOPHEN
     Indication: Product used for unknown indication
     Dosage: 1000 MILLIGRAM
     Route: 065
     Dates: start: 201903
  24. MIDAZOLAM [Concomitant]
     Active Substance: MIDAZOLAM
     Indication: Product used for unknown indication
     Dosage: UNK
     Route: 065
     Dates: start: 201903
  25. Sodium hydrogen carbonate/potassium chloride/sodium chloride/macrogol [Concomitant]
     Indication: Product used for unknown indication
     Dosage: UNK
     Route: 065
     Dates: start: 201902
  26. FERROUS GLUCONATE [Concomitant]
     Active Substance: FERROUS GLUCONATE
     Indication: Product used for unknown indication
     Dosage: 1 DOSAGE FORM, QD (1X DAILY (MORNING)
     Route: 065
  27. DIGITOXIN [Concomitant]
     Active Substance: DIGITOXIN
     Indication: Product used for unknown indication
     Dosage: UNK (0.07)
     Route: 065
     Dates: start: 201901
  28. MOMETASONE [Concomitant]
     Active Substance: MOMETASONE
     Indication: Product used for unknown indication
     Dosage: UNK, 1 MG/G
     Route: 065
  29. BISOPROLOL [Concomitant]
     Active Substance: BISOPROLOL
     Indication: Product used for unknown indication
     Dosage: 5 MILLIGRAM, QD (STOOPED ON 12 JUN 2018 BUT ONGOING AT DISCHARGE FROM REHABILITATION)
     Route: 048
     Dates: start: 20180524

REACTIONS (9)
  - Clear cell renal cell carcinoma [Fatal]
  - Metastases to lung [Fatal]
  - Suicidal ideation [Fatal]
  - Renal neoplasm [Fatal]
  - Renal cancer [Fatal]
  - Metastatic renal cell carcinoma [Not Recovered/Not Resolved]
  - Metastases to central nervous system [Unknown]
  - Brain oedema [Unknown]
  - Adenoma benign [Recovered/Resolved]

NARRATIVE: CASE EVENT DATE: 20080101
